FAERS Safety Report 4744969-4 (Version None)
Quarter: 2005Q3

REPORT INFORMATION
  Report Type: 
  Country: None (occurrence: None)
  Receive Date: 20050811
  Receipt Date: 20050804
  Transmission Date: 20060218
  Serious: Yes (Hospitalization)
  Sender: FDA-Public Use
  Company Number: T05-USA-00206-01

PATIENT
  Age: 67 Year
  Sex: Male
  Weight: 71.6683 kg

DRUGS (15)
  1. MEMANTINE HCL [Suspect]
     Indication: DEMENTIA ALZHEIMER'S TYPE
     Dosage: 20 MG QD PO
     Route: 048
     Dates: start: 20040114
  2. MEMANTINE HCL [Suspect]
     Indication: DEMENTIA ALZHEIMER'S TYPE
     Dosage: 20 MG QD PO
     Route: 048
     Dates: start: 20030124, end: 20040112
  3. MEMANTINE HCL [Suspect]
     Indication: DEMENTIA ALZHEIMER'S TYPE
     Dosage: 20 MG QD PO
     Route: 048
     Dates: start: 20020807, end: 20030124
  4. MEMANTINE HCL [Suspect]
     Indication: DEMENTIA ALZHEIMER'S TYPE
     Dosage: 2 TABLET BID PO
     Route: 048
     Dates: start: 20020703, end: 20020806
  5. ... [Suspect]
  6. METRONIDAZOLE [Concomitant]
  7. TRAZODONE [Concomitant]
  8. LIPITOR [Concomitant]
  9. FLOMAX [Concomitant]
  10. PROMETHAZINE [Concomitant]
  11. LOVENOX [Concomitant]
  12. METOPROLOL [Concomitant]
  13. MICARDIS HCT [Concomitant]
  14. PREVACID [Concomitant]
  15. ASPIRIN [Concomitant]

REACTIONS (14)
  - BLOOD ALBUMIN ABNORMAL [None]
  - COLITIS [None]
  - CONDITION AGGRAVATED [None]
  - GASTRITIS [None]
  - HAEMOGLOBIN DECREASED [None]
  - HYPOKALAEMIA [None]
  - HYPONATRAEMIA [None]
  - HYPOTENSION [None]
  - MALNUTRITION [None]
  - ORAL INTAKE REDUCED [None]
  - PROTEIN TOTAL DECREASED [None]
  - REFUSAL OF TREATMENT BY PATIENT [None]
  - RENAL FAILURE [None]
  - VOMITING [None]
